FAERS Safety Report 7134805-3 (Version None)
Quarter: 2010Q4

REPORT INFORMATION
  Report Type: 
  Country: None (occurrence: None)
  Receive Date: 20101203
  Receipt Date: 20101125
  Transmission Date: 20110411
  Serious: Yes (Hospitalization)
  Sender: FDA-Public Use
  Company Number: FR-JNJFOC-20101108646

PATIENT
  Age: 83 Year
  Sex: Male

DRUGS (11)
  1. TAVANIC [Suspect]
     Indication: STAPHYLOCOCCAL INFECTION
     Route: 048
  2. TAVANIC [Suspect]
     Route: 048
  3. ORBENINE [Suspect]
     Indication: STAPHYLOCOCCAL INFECTION
     Route: 042
  4. ENALAPRIL MALEATE [Concomitant]
     Route: 065
  5. ELISOR [Concomitant]
     Route: 065
  6. LOVENOX [Concomitant]
     Route: 065
  7. METFORMIN [Concomitant]
     Route: 065
  8. FUROSEMIDE [Concomitant]
     Route: 065
  9. PROSCAR [Concomitant]
     Route: 065
  10. NOVONORM [Concomitant]
     Route: 065
  11. KARDEGIC [Concomitant]
     Route: 065

REACTIONS (2)
  - NEPHROPATHY [None]
  - RENAL FAILURE ACUTE [None]
